FAERS Safety Report 9063182 (Version 1)
Quarter: 2013Q1

REPORT INFORMATION
  Report Type: Report from Study
  Country: US (occurrence: US)
  Receive Date: 20130131
  Receipt Date: 20130131
  Transmission Date: 20140127
  Serious: No
  Sender: FDA-Public Use
  Company Number: US-ABBOTT-12P-163-1013515-00

PATIENT
  Sex: Male

DRUGS (3)
  1. HUMIRA [Suspect]
     Indication: CROHN^S DISEASE
     Dosage: 4 PENS DAY 1
     Dates: start: 201211, end: 201211
  2. HUMIRA [Suspect]
     Dosage: 2 PENS DAY 15
  3. HUMIRA [Suspect]
     Dosage: MAINTENANCE DOSING

REACTIONS (3)
  - Depression [Unknown]
  - Fatigue [Unknown]
  - Anxiety [Unknown]
